FAERS Safety Report 17520089 (Version 1)
Quarter: 2020Q1

REPORT INFORMATION
  Report Type: Spontaneous
  Country: US (occurrence: US)
  Receive Date: 20200229
  Receipt Date: 20200229
  Transmission Date: 20200409
  Serious: Yes (Hospitalization)
  Sender: FDA-Public Use
  Company Number: None

PATIENT
  Age: 80 Year
  Sex: Male
  Weight: 65.8 kg

DRUGS (1)
  1. ERBITUX [Suspect]
     Active Substance: CETUXIMAB
     Dates: end: 20200219

REACTIONS (5)
  - Feeling cold [None]
  - Pneumonia [None]
  - Influenza [None]
  - Chills [None]
  - Body temperature increased [None]

NARRATIVE: CASE EVENT DATE: 20200220
